FAERS Safety Report 5146911-3 (Version None)
Quarter: 2006Q4

REPORT INFORMATION
  Report Type: 
  Country: None (occurrence: None)
  Receive Date: 20061109
  Receipt Date: 20060131
  Transmission Date: 20070319
  Serious: Yes (Hospitalization, Other)
  Sender: FDA-Public Use
  Company Number: US-BAYER-200610612BWH

PATIENT
  Age: 71 Year
  Sex: Male
  Weight: 109 kg

DRUGS (14)
  1. SORAFENIB [Suspect]
     Indication: METASTATIC RENAL CELL CARCINOMA
     Dosage: AS USED: 200-400 MG  UNIT DOSE: 200 MG
     Route: 048
  2. SORAFENIB [Suspect]
     Dosage: TOTAL DAILY DOSE: 800 MG  UNIT DOSE: 200 MG
     Route: 048
     Dates: start: 20051122
  3. LANTUS [Concomitant]
     Indication: DIABETES MELLITUS
     Route: 058
  4. DILTIAZEM HCL [Concomitant]
     Indication: HYPERTENSION
     Route: 048
     Dates: start: 20000101
  5. TEMAZEPAM [Concomitant]
     Indication: ANXIETY
     Route: 048
     Dates: start: 20000101
  6. BENICAR [Concomitant]
     Indication: HYPERTENSION
     Route: 048
     Dates: start: 20051208
  7. CLONIDINE [Concomitant]
  8. CLONIDINE [Concomitant]
  9. ASPIRIN [Concomitant]
     Dosage: TOTAL DAILY DOSE: 81 MG
     Route: 048
  10. ASPIRIN [Concomitant]
  11. LISINOPRIL [Concomitant]
     Dosage: AS USED: 20/12.5 MG
     Route: 048
  12. COREG [Concomitant]
     Dosage: TOTAL DAILY DOSE: 25 MG
     Route: 048
  13. PREVACID [Concomitant]
     Dosage: TOTAL DAILY DOSE: 30 MG
     Route: 048
  14. DIGOXIN [Concomitant]
     Dosage: TOTAL DAILY DOSE: 0.125 MG
     Route: 048

REACTIONS (8)
  - ARTHRALGIA [None]
  - ASTHENIA [None]
  - ATRIAL FIBRILLATION [None]
  - CEREBROVASCULAR ACCIDENT [None]
  - FATIGUE [None]
  - HAEMOPTYSIS [None]
  - HYPERTENSION [None]
  - PRODUCTIVE COUGH [None]
